FAERS Safety Report 25439023 (Version 1)
Quarter: 2025Q2

REPORT INFORMATION
  Report Type: Spontaneous
  Country: US (occurrence: US)
  Receive Date: 20250616
  Receipt Date: 20250616
  Transmission Date: 20250717
  Serious: No
  Sender: SANOFI AVENTIS
  Company Number: US-SA-2025SA168315

PATIENT
  Age: 33 Year
  Sex: Female

DRUGS (4)
  1. CABLIVI [Suspect]
     Active Substance: CAPLACIZUMAB-YHDP
     Indication: Thrombotic microangiopathy
  2. CABLIVI [Suspect]
     Active Substance: CAPLACIZUMAB-YHDP
     Indication: Thrombotic microangiopathy
  3. CABLIVI [Suspect]
     Active Substance: CAPLACIZUMAB-YHDP
     Indication: Thrombotic microangiopathy
  4. CABLIVI [Suspect]
     Active Substance: CAPLACIZUMAB-YHDP
     Indication: Thrombotic microangiopathy

REACTIONS (5)
  - Injection site rash [Unknown]
  - Injection site swelling [Unknown]
  - Injection site pruritus [Unknown]
  - Product administered at inappropriate site [Unknown]
  - Product use in unapproved indication [Unknown]
